FAERS Safety Report 8108189-8 (Version None)
Quarter: 2012Q1

REPORT INFORMATION
  Report Type: 
  Country: None (occurrence: None)
  Receive Date: 20120202
  Receipt Date: 20120126
  Transmission Date: 20120608
  Serious: Yes (Other)
  Sender: FDA-Public Use
  Company Number: FR-JNJFOC-20120113253

PATIENT
  Age: 72 Year
  Sex: Female

DRUGS (1)
  1. XARELTO [Suspect]
     Indication: KNEE ARTHROPLASTY
     Route: 065
     Dates: end: 20120123

REACTIONS (2)
  - OEDEMA PERIPHERAL [None]
  - THROMBOSIS [None]
